FAERS Safety Report 5704604-5 (Version None)
Quarter: 2008Q2

REPORT INFORMATION
  Report Type: 
  Country: None (occurrence: None)
  Receive Date: 20080414
  Receipt Date: 20080404
  Transmission Date: 20081010
  Serious: Yes (Hospitalization)
  Sender: FDA-Public Use
  Company Number: FR-BRISTOL-MYERS SQUIBB COMPANY-13965629

PATIENT
  Age: 79 Year
  Sex: Male
  Weight: 77 kg

DRUGS (2)
  1. ERBITUX [Suspect]
     Indication: COLORECTAL CANCER
     Route: 042
     Dates: start: 20070614, end: 20071010
  2. ELOXATIN [Suspect]
     Indication: COLORECTAL CANCER
     Route: 042
     Dates: start: 20070614, end: 20071010

REACTIONS (3)
  - PURPURA [None]
  - SKIN TOXICITY [None]
  - SUPERINFECTION [None]
